FAERS Safety Report 12876600 (Version 1)
Quarter: 2016Q4

REPORT INFORMATION
  Report Type: Spontaneous
  Country: US (occurrence: US)
  Receive Date: 20161021
  Receipt Date: 20161021
  Transmission Date: 20170207
  Serious: Yes (Disabling)
  Sender: FDA-Public Use
  Company Number: None

PATIENT
  Age: 53 Year
  Sex: Female
  Weight: 117 kg

DRUGS (6)
  1. JARDIANCE [Concomitant]
     Active Substance: EMPAGLIFLOZIN
  2. MULTI-VITAMIN [Concomitant]
     Active Substance: .ALPHA.-TOCOPHEROL ACETATE, DL-\ASCORBIC ACID\CYANOCOBALAMIN\FLUORIDE ION\FOLIC ACID\NIACIN\PYRIDOXINE\RIBOFLAVIN\THIAMINE\VITAMIN A\VITAMIN D
  3. OMEGA-3 ACIDS [Suspect]
     Active Substance: OMEGA-3 FATTY ACIDS
     Indication: BLOOD TRIGLYCERIDES INCREASED
     Dosage: ?          QUANTITY:2 CAPSULE(S);?
     Route: 048
     Dates: start: 20160430, end: 20161001
  4. PABA [Concomitant]
     Active Substance: AMINOBENZOIC ACID
  5. TRADJENTA [Concomitant]
     Active Substance: LINAGLIPTIN
  6. BIOTIN [Concomitant]
     Active Substance: BIOTIN

REACTIONS (5)
  - Rash [None]
  - Swollen tongue [None]
  - Dyspnoea [None]
  - Pruritus [None]
  - Burning sensation [None]

NARRATIVE: CASE EVENT DATE: 20161001
